FAERS Safety Report 23712157 (Version 1)
Quarter: 2024Q2

REPORT INFORMATION
  Report Type: Spontaneous
  Country: US (occurrence: None)
  Receive Date: 20240404
  Receipt Date: 20240404
  Transmission Date: 20240716
  Serious: Yes (Other)
  Sender: FDA-Public Use
  Company Number: None

PATIENT
  Age: 39 Year
  Sex: Female
  Weight: 72.1 kg

DRUGS (4)
  1. TERIFLUNOMIDE [Suspect]
     Active Substance: TERIFLUNOMIDE
     Indication: Multiple sclerosis
     Dosage: FREQUENCY : DAILY;?
     Route: 048
     Dates: start: 20230801, end: 20231101
  2. diltiazem/Cardizem 180mg [Concomitant]
     Dates: start: 20181218
  3. NEBIVOLOL [Concomitant]
     Active Substance: NEBIVOLOL
     Dates: start: 20230612
  4. Macrodantin 50mg [Concomitant]
     Dates: start: 20230303

REACTIONS (4)
  - Eye pain [None]
  - Ocular discomfort [None]
  - Halo vision [None]
  - Vision blurred [None]

NARRATIVE: CASE EVENT DATE: 20231025
